FAERS Safety Report 15286557 (Version 12)
Quarter: 2019Q3

REPORT INFORMATION
  Report Type: Spontaneous
  Country: US (occurrence: US)
  Receive Date: 20180816
  Receipt Date: 20190729
  Transmission Date: 20191004
  Serious: Yes (Hospitalization)
  Sender: FDA-Public Use
  Company Number: US-ACTELION-A-NJ2018-176756

PATIENT
  Age: 67 Year
  Sex: Female
  Weight: 82.99 kg

DRUGS (7)
  1. SILDENAFIL. [Concomitant]
     Active Substance: SILDENAFIL
  2. CLARITIN [Concomitant]
     Active Substance: LORATADINE
  3. UPTRAVI [Suspect]
     Active Substance: SELEXIPAG
     Indication: PULMONARY ARTERIAL HYPERTENSION
     Dosage: 1600 MCG, BID
     Route: 048
  4. UPTRAVI [Suspect]
     Active Substance: SELEXIPAG
     Dosage: 800 MCG, UNK
     Route: 048
  5. OPSUMIT [Suspect]
     Active Substance: MACITENTAN
     Indication: PULMONARY ARTERIAL HYPERTENSION
     Dosage: 10 MG, QD
     Route: 048
     Dates: start: 20180313
  6. UPTRAVI [Suspect]
     Active Substance: SELEXIPAG
     Dosage: 600 MCG, BID
     Route: 048
  7. UPTRAVI [Suspect]
     Active Substance: SELEXIPAG
     Dosage: 1400 MCG, BID
     Route: 048

REACTIONS (36)
  - Dehydration [Not Recovered/Not Resolved]
  - Malaise [Not Recovered/Not Resolved]
  - Headache [Unknown]
  - Diarrhoea [Unknown]
  - Upper-airway cough syndrome [Unknown]
  - Herpes zoster [Unknown]
  - Rash [Unknown]
  - Nasal congestion [Unknown]
  - Blood glucose increased [Unknown]
  - Somnolence [Unknown]
  - Thirst [Not Recovered/Not Resolved]
  - Anaemia [Unknown]
  - Sputum discoloured [Unknown]
  - Vomiting [Unknown]
  - Dry mouth [Unknown]
  - Type 1 diabetes mellitus [Unknown]
  - Gastrointestinal disorder [Unknown]
  - Pain in jaw [Unknown]
  - Myalgia [Not Recovered/Not Resolved]
  - Pain [Unknown]
  - Hypotension [Not Recovered/Not Resolved]
  - Dyspnoea [Unknown]
  - Hepatic enzyme abnormal [Unknown]
  - Eye pain [Unknown]
  - Flushing [Unknown]
  - Rhinorrhoea [Unknown]
  - Productive cough [Unknown]
  - Nausea [Unknown]
  - Ear discomfort [Unknown]
  - Decreased appetite [Unknown]
  - Weight decreased [Unknown]
  - Respiratory tract congestion [Unknown]
  - Fatigue [Unknown]
  - Feeling abnormal [Unknown]
  - Dizziness postural [Unknown]
  - Asthenia [Unknown]

NARRATIVE: CASE EVENT DATE: 20180816
